FAERS Safety Report 6153973-3 (Version None)
Quarter: 2009Q2

REPORT INFORMATION
  Report Type: 
  Country: None (occurrence: None)
  Receive Date: 20090414
  Receipt Date: 20090407
  Transmission Date: 20091009
  Serious: Yes (Hospitalization)
  Sender: FDA-Public Use
  Company Number: US-BIOGENIDEC-2009BI010741

PATIENT
  Age: 56 Year
  Sex: Female

DRUGS (11)
  1. TYSABRI [Suspect]
     Indication: MULTIPLE SCLEROSIS
     Route: 042
     Dates: start: 20070905
  2. LISINOPRIL [Concomitant]
     Indication: HYPERTENSION
  3. PROVIGIL [Concomitant]
     Indication: FATIGUE
     Route: 048
     Dates: start: 20020725
  4. LEXAPRO [Concomitant]
     Indication: DEPRESSION
     Route: 048
     Dates: start: 20090209
  5. UROXATRAL [Concomitant]
  6. PHENERGAN [Concomitant]
  7. CIPROFLOXACIN [Concomitant]
     Indication: URINARY TRACT INFECTION
  8. MACROBID [Concomitant]
     Indication: PROPHYLAXIS URINARY TRACT INFECTION
     Route: 048
  9. HYDROCHLOROTHIAZIDE [Concomitant]
  10. MEPERIDINE HCL [Concomitant]
  11. MULTI-VITAMIN [Concomitant]

REACTIONS (1)
  - CLOSTRIDIUM DIFFICILE COLITIS [None]
